FAERS Safety Report 9110475 (Version 1)
Quarter: 2013Q1

REPORT INFORMATION
  Report Type: Spontaneous
  Country: US (occurrence: US)
  Receive Date: 20130219
  Receipt Date: 20130219
  Transmission Date: 20140127
  Serious: No
  Sender: FDA-Public Use
  Company Number: US-BRACCO-007394

PATIENT
  Age: 25 Year
  Sex: Male

DRUGS (2)
  1. ISOVUE 300 [Suspect]
     Indication: NEOPLASM MALIGNANT
     Route: 042
     Dates: start: 20120112, end: 20120112
  2. ISOVUE 300 [Suspect]
     Indication: COMPUTERISED TOMOGRAM
     Route: 042
     Dates: start: 20120112, end: 20120112

REACTIONS (4)
  - Extravasation [Unknown]
  - Dystonia [Recovering/Resolving]
  - Contusion [Recovering/Resolving]
  - Erythema [Recovering/Resolving]
